FAERS Safety Report 14771761 (Version 1)
Quarter: 2018Q2

REPORT INFORMATION
  Report Type: Spontaneous
  Country: US (occurrence: US)
  Receive Date: 20180417
  Receipt Date: 20180417
  Transmission Date: 20180711
  Serious: No
  Sender: FDA-Public Use
  Company Number: US-ALLERGAN-1760300US

PATIENT
  Age: 50 Year
  Sex: Female

DRUGS (2)
  1. LATISSE [Suspect]
     Active Substance: BIMATOPROST
     Indication: PRODUCT USED FOR UNKNOWN INDICATION
     Dosage: 1 GTT, QPM
     Route: 061
     Dates: start: 20170906, end: 201709
  2. LATISSE [Suspect]
     Active Substance: BIMATOPROST
     Dosage: UNK

REACTIONS (2)
  - Eye pruritus [Recovered/Resolved]
  - Eyelids pruritus [Unknown]
